FAERS Safety Report 5965600-6 (Version None)
Quarter: 2008Q4

REPORT INFORMATION
  Report Type: 
  Country: None (occurrence: None)
  Receive Date: 20081125
  Receipt Date: 20081114
  Transmission Date: 20090506
  Serious: Yes (Hospitalization)
  Sender: FDA-Public Use
  Company Number: FR-AMGEN-UK318953

PATIENT
  Sex: Female
  Weight: 120 kg

DRUGS (1)
  1. ROMIPLOSTIM [Suspect]
     Indication: IDIOPATHIC THROMBOCYTOPENIC PURPURA
     Route: 058
     Dates: start: 20080327, end: 20080903

REACTIONS (2)
  - ERYTHROBLASTOSIS [None]
  - LEUKOCYTOSIS [None]
